FAERS Safety Report 23922440 (Version 1)
Quarter: 2024Q2

REPORT INFORMATION
  Report Type: Spontaneous
  Country: US (occurrence: None)
  Receive Date: 20240531
  Receipt Date: 20240531
  Transmission Date: 20240716
  Serious: Yes (Death, Other)
  Sender: FDA-Public Use
  Company Number: US-Axsome Therapeutics, Inc.-AXS202404-000396

PATIENT
  Age: 62 Year
  Sex: Male

DRUGS (3)
  1. AUVELITY [Suspect]
     Active Substance: BUPROPION HYDROCHLORIDE\DEXTROMETHORPHAN HYDROBROMIDE
     Indication: Transcranial magnetic stimulation
     Dosage: ONLY FIRST DOSE WAS TAKEN BY PATIENT
     Route: 048
     Dates: start: 20240329, end: 20240330
  2. Ketamine therapy [Concomitant]
     Indication: Affective disorder
     Dosage: UNK
     Route: 065
  3. CAPLYTA [Concomitant]
     Active Substance: LUMATEPERONE
     Indication: Affective disorder
     Dosage: UNK
     Route: 065

REACTIONS (2)
  - Completed suicide [Fatal]
  - Off label use [Unknown]

NARRATIVE: CASE EVENT DATE: 20240328
